FAERS Safety Report 13472622 (Version 1)
Quarter: 2017Q2

REPORT INFORMATION
  Report Type: Spontaneous
  Country: US (occurrence: US)
  Receive Date: 20170423
  Receipt Date: 20170423
  Transmission Date: 20170830
  Serious: Yes (Life-Threatening)
  Sender: FDA-Public Use
  Company Number: None

PATIENT
  Age: 82 Year
  Sex: Male
  Weight: 74.25 kg

DRUGS (1)
  1. ISOSORBIDE MOBONITRA 30MG TER [Suspect]
     Active Substance: ISOSORBIDE MONONITRATE
     Indication: CHEST PAIN
     Dates: start: 20170422, end: 20170422

REACTIONS (8)
  - Fatigue [None]
  - Confusional state [None]
  - Panic attack [None]
  - Oral discomfort [None]
  - Dyspnoea [None]
  - Nausea [None]
  - Throat irritation [None]
  - Tongue discomfort [None]

NARRATIVE: CASE EVENT DATE: 20170422
